FAERS Safety Report 9942544 (Version 1)
Quarter: 2014Q1

REPORT INFORMATION
  Report Type: Report from Study
  Country: US (occurrence: US)
  Receive Date: 20140303
  Receipt Date: 20140303
  Transmission Date: 20141002
  Serious: No
  Sender: FDA-Public Use
  Company Number: US-ABBVIE-13P-163-1045064-00

PATIENT
  Age: 48 Year
  Sex: Female

DRUGS (8)
  1. HUMIRA [Suspect]
     Indication: CROHN^S DISEASE
     Dosage: ORDERED, DAY ONE
     Route: 058
  2. HUMIRA [Suspect]
     Indication: COLITIS ULCERATIVE
     Dosage: ORDERED, DAY 15
  3. ASACOL HD [Concomitant]
     Indication: PRODUCT USED FOR UNKNOWN INDICATION
     Dosage: (4) DAILY
  4. SYNTHROID [Concomitant]
     Indication: PRODUCT USED FOR UNKNOWN INDICATION
     Dosage: 5 MCG DAILY
  5. ATIVAN [Concomitant]
     Indication: ANXIETY
     Dosage: 1 MG DAILY
  6. RECLAST [Concomitant]
     Indication: PRODUCT USED FOR UNKNOWN INDICATION
     Route: 042
  7. ZYRTEC [Concomitant]
     Indication: HYPERSENSITIVITY
  8. NASONEX [Concomitant]
     Indication: HYPERSENSITIVITY

REACTIONS (1)
  - Drug prescribing error [Unknown]
